FAERS Safety Report 6153134-8 (Version None)
Quarter: 2009Q2

REPORT INFORMATION
  Report Type: 
  Country: None (occurrence: None)
  Receive Date: 20090413
  Receipt Date: 20090406
  Transmission Date: 20091009
  Serious: Yes (Life-Threatening, Hospitalization)
  Sender: FDA-Public Use
  Company Number: MY-RB-013669-09

PATIENT
  Age: 28 Year
  Sex: Female

DRUGS (2)
  1. SUBUTEX [Suspect]
     Indication: DRUG USE FOR UNKNOWN INDICATION
     Dosage: UNKNOWN DOSAGE
     Route: 042
  2. DORMICUM [Suspect]
     Indication: DRUG USE FOR UNKNOWN INDICATION
     Dosage: UNKNOWN DOSAGE AND FORM
     Route: 042

REACTIONS (14)
  - CARDIAC VALVE VEGETATION [None]
  - CARDIOMYOPATHY [None]
  - DISSEMINATED INTRAVASCULAR COAGULATION [None]
  - EJECTION FRACTION DECREASED [None]
  - ENDOCARDITIS [None]
  - INTENTIONAL DRUG MISUSE [None]
  - LEFT VENTRICULAR DYSFUNCTION [None]
  - LUNG ABSCESS [None]
  - PNEUMONIA [None]
  - PULMONARY EMBOLISM [None]
  - RENAL EMBOLISM [None]
  - SEPTIC SHOCK [None]
  - STAPHYLOCOCCAL SEPSIS [None]
  - TRICUSPID VALVE INCOMPETENCE [None]
